FAERS Safety Report 9173241 (Version 2)
Quarter: 2013Q2

REPORT INFORMATION
  Report Type: Spontaneous
  Country: US (occurrence: None)
  Receive Date: 20130314
  Receipt Date: 20130521
  Transmission Date: 20140414
  Serious: Yes (Hospitalization, Other)
  Sender: FDA-Public Use
  Company Number: 2013P1002951

PATIENT
  Age: 50 Year
  Sex: Female

DRUGS (4)
  1. INFUMORPH [Suspect]
  2. FENTANYL [Suspect]
     Indication: PAIN
     Dosage: INTH
     Route: 037
  3. BACLOFEN [Suspect]
     Indication: PAIN
     Route: 037
  4. BACLOFEN [Suspect]

REACTIONS (1)
  - Device related infection [None]
